FAERS Safety Report 5035092-2 (Version None)
Quarter: 2006Q2

REPORT INFORMATION
  Report Type: 
  Country: None (occurrence: None)
  Receive Date: 20060622
  Receipt Date: 20060622
  Transmission Date: 20061013
  Serious: Yes (Life-Threatening, Hospitalization)
  Sender: FDA-Public Use
  Company Number: None

PATIENT
  Age: 24 Year
  Sex: Male

DRUGS (1)
  1. L-ASPARAGINASE MERCK [Suspect]
     Indication: T-CELL TYPE ACUTE LEUKAEMIA
     Dosage: 22,5000 U/M2 WEEKLY IM
     Route: 030
     Dates: start: 20060106, end: 20060605

REACTIONS (1)
  - DEEP VEIN THROMBOSIS [None]
